FAERS Safety Report 19157920 (Version 1)
Quarter: 2021Q2

REPORT INFORMATION
  Report Type: Spontaneous
  Country: US (occurrence: US)
  Receive Date: 20210419
  Receipt Date: 20210419
  Transmission Date: 20210717
  Serious: No
  Sender: FDA-Public Use
  Company Number: None

PATIENT
  Age: 74 Year
  Sex: Female

DRUGS (1)
  1. TETRABENAZINE. [Suspect]
     Active Substance: TETRABENAZINE
     Indication: TARDIVE DYSKINESIA
     Dosage: ?          OTHER FREQUENCY:Q AM;?
     Route: 048
     Dates: start: 20210407, end: 20210416

REACTIONS (8)
  - Tongue movement disturbance [None]
  - Condition aggravated [None]
  - Restlessness [None]
  - Suicidal ideation [None]
  - Suicidal behaviour [None]
  - Dyskinesia [None]
  - Nightmare [None]
  - Intentional product use issue [None]

NARRATIVE: CASE EVENT DATE: 20210416
